FAERS Safety Report 10456817 (Version 2)
Quarter: 2014Q4

REPORT INFORMATION
  Report Type: Spontaneous
  Country: US (occurrence: US)
  Receive Date: 20140916
  Receipt Date: 20141027
  Transmission Date: 20150528
  Serious: No
  Sender: FDA-Public Use
  Company Number: US-009507513-1409USA001200

PATIENT
  Sex: Female

DRUGS (4)
  1. VICTRELIS [Suspect]
     Active Substance: BOCEPREVIR
     Indication: HEPATITIS C
     Dosage: 800 MG, TID
     Route: 048
     Dates: start: 20130704
  2. VICTRELIS [Suspect]
     Active Substance: BOCEPREVIR
     Dosage: 6/QD
     Route: 048
  3. PEGASYS [Suspect]
     Active Substance: PEGINTERFERON ALFA-2A
     Indication: HEPATITIS C
     Dosage: 180 MICROGRAM, QW
     Route: 058
     Dates: start: 20130610
  4. RIBASPHERE [Concomitant]
     Active Substance: RIBAVIRIN
     Dosage: 600 MG, BID

REACTIONS (3)
  - Seizure [Not Recovered/Not Resolved]
  - Drug administration error [Unknown]
  - Treatment noncompliance [Not Recovered/Not Resolved]
